FAERS Safety Report 4548459-3 (Version None)
Quarter: 2004Q4

REPORT INFORMATION
  Report Type: 
  Country: None (occurrence: None)
  Receive Date: 20041227
  Receipt Date: 20041027
  Transmission Date: 20050328
  Serious: Yes (Death, Hospitalization)
  Sender: FDA-Public Use
  Company Number: 04P-163-0278904-00

PATIENT
  Age: 76 Year
  Sex: Female

DRUGS (5)
  1. HUMIRA [Suspect]
     Indication: RHEUMATOID ARTHRITIS
     Dosage: 40 MG, 1 IN 2 WK, SUBCUTANEOUS
     Route: 058
     Dates: start: 20040101, end: 20040601
  2. SULFASALAZINE [Concomitant]
  3. FOLIC ACID [Concomitant]
  4. VICODONE [Concomitant]
  5. EPOGEN [Concomitant]

REACTIONS (2)
  - PNEUMONIA [None]
  - SMALL CELL LUNG CANCER STAGE UNSPECIFIED [None]
